FAERS Safety Report 8419340-4 (Version None)
Quarter: 2012Q2

REPORT INFORMATION
  Report Type: 
  Country: None (occurrence: None)
  Receive Date: 20120607
  Receipt Date: 20120529
  Transmission Date: 20120825
  Serious: Yes (Hospitalization, Other)
  Sender: FDA-Public Use
  Company Number: US-ASTRAZENECA-2012SE35525

PATIENT
  Age: 43 Year
  Sex: Male

DRUGS (4)
  1. SEROQUEL [Suspect]
     Dosage: 25-30 TABLETS OF 100 MG TABLETS WITHIN 24 HOURS
     Route: 048
  2. SEROQUEL [Suspect]
     Indication: BIPOLAR DISORDER
     Route: 048
  3. SEROQUEL [Suspect]
     Indication: ANXIETY DISORDER
     Route: 048
  4. SEROQUEL [Suspect]
     Dosage: 25-30 TABLETS OF 100 MG TABLETS WITHIN 24 HOURS
     Route: 048

REACTIONS (17)
  - LOSS OF CONSCIOUSNESS [None]
  - SUICIDAL IDEATION [None]
  - AGGRESSION [None]
  - HEPATITIS C [None]
  - VOMITING [None]
  - DRUG DOSE OMISSION [None]
  - INTENTIONAL OVERDOSE [None]
  - TACHYPHRENIA [None]
  - AEROPHAGIA [None]
  - DRUG WITHDRAWAL SYNDROME [None]
  - ANXIETY [None]
  - TENSION HEADACHE [None]
  - DISCOMFORT [None]
  - LIVER DISORDER [None]
  - MALAISE [None]
  - TREMOR [None]
  - MUSCLE TWITCHING [None]
